FAERS Safety Report 4910886-X (Version None)
Quarter: 2006Q1

REPORT INFORMATION
  Report Type: 
  Country: None (occurrence: None)
  Receive Date: 20060209
  Receipt Date: 20060201
  Transmission Date: 20060701
  Serious: Yes (Hospitalization)
  Sender: FDA-Public Use
  Company Number: 2006-DE-00550GD

PATIENT
  Sex: Female

DRUGS (3)
  1. HYDROCORTISONE [Suspect]
     Indication: COLITIS ULCERATIVE
     Dosage: IV
     Route: 042
  2. AZATHIOPRINE [Suspect]
     Indication: COLITIS ULCERATIVE
  3. STEROIDS (CORTICOSTEROIDS) [Suspect]
     Indication: COLITIS ULCERATIVE

REACTIONS (9)
  - AMENORRHOEA [None]
  - BILE DUCT STENOSIS [None]
  - CHOLANGITIS SCLEROSING [None]
  - DRUG INEFFECTIVE [None]
  - DYSPLASIA [None]
  - GASTROINTESTINAL DYSPLASIA [None]
  - HEPATIC CIRRHOSIS [None]
  - NEOPLASM MALIGNANT [None]
  - THERAPY NON-RESPONDER [None]
